FAERS Safety Report 8215504-3 (Version None)
Quarter: 2012Q1

REPORT INFORMATION
  Report Type: 
  Country: None (occurrence: None)
  Receive Date: 20120316
  Receipt Date: 20120312
  Transmission Date: 20120608
  Serious: No
  Sender: FDA-Public Use
  Company Number: FR-ROCHE-1043875

PATIENT
  Age: 2 Year
  Sex: Male
  Weight: 13 kg

DRUGS (1)
  1. TAMIFLU [Suspect]
     Indication: INFLUENZA
     Dosage: ONCE IN MORNING AND ONCE IN EVENING
     Route: 048
     Dates: start: 20120223, end: 20120227

REACTIONS (1)
  - OVERDOSE [None]
